FAERS Safety Report 8562354-4 (Version None)
Quarter: 2012Q3

REPORT INFORMATION
  Report Type: 
  Country: None (occurrence: None)
  Receive Date: 20120802
  Receipt Date: 20120725
  Transmission Date: 20120928
  Serious: Yes (Other)
  Sender: FDA-Public Use
  Company Number: US-ABBOTT-12P-163-0960113-00

PATIENT
  Age: 68 Year
  Sex: Male

DRUGS (3)
  1. HUMIRA [Suspect]
     Indication: PRODUCT USED FOR UNKNOWN INDICATION
     Dates: start: 20100101
  2. CLARINEX [Concomitant]
     Indication: HYPERSENSITIVITY
  3. HUMIRA [Suspect]

REACTIONS (2)
  - THROMBOSIS [None]
  - PAIN IN EXTREMITY [None]
